FAERS Safety Report 21804108 (Version 9)
Quarter: 2024Q1

REPORT INFORMATION
  Report Type: Spontaneous
  Country: CA (occurrence: CA)
  Receive Date: 20230102
  Receipt Date: 20240215
  Transmission Date: 20240410
  Serious: Yes (Other)
  Sender: FDA-Public Use
  Company Number: CA-CELLTRION INC.-2022CA007842

PATIENT

DRUGS (28)
  1. INFLECTRA [Suspect]
     Active Substance: INFLIXIMAB-DYYB
     Indication: Colitis ulcerative
     Dosage: WEEKS 0,2,6 THEN EVERY 8 WEEKS, INDUCTION
     Route: 042
     Dates: start: 20220331
  2. INFLECTRA [Suspect]
     Active Substance: INFLIXIMAB-DYYB
     Dosage: WEEKS 0,2,6 THEN EVERY 8 WEEKS
     Route: 042
     Dates: start: 20220413
  3. INFLECTRA [Suspect]
     Active Substance: INFLIXIMAB-DYYB
     Dosage: WEEKS 0,2,6 THEN EVERY 8 WEEKS
     Route: 042
     Dates: start: 20221221
  4. INFLECTRA [Suspect]
     Active Substance: INFLIXIMAB-DYYB
     Dosage: EVERY 8 WEEKS (5MG/KG WEEKS 0,2,6 THEN EVERY 8 WEEKS)
     Route: 042
     Dates: start: 20230417, end: 20230417
  5. INFLECTRA [Suspect]
     Active Substance: INFLIXIMAB-DYYB
     Dosage: (5 MG/KG) AFTER 8 WEEKS
     Route: 042
     Dates: start: 20230612, end: 20230612
  6. INFLECTRA [Suspect]
     Active Substance: INFLIXIMAB-DYYB
     Dosage: 8 WEEKS AND 1 DAY (W0,2,6 THEN EVERY 8 WEEKS)
     Route: 042
     Dates: start: 20230808
  7. INFLECTRA [Suspect]
     Active Substance: INFLIXIMAB-DYYB
     Dosage: (10MG/KG), EVERY 6 WEEKS
     Route: 042
     Dates: start: 20230919
  8. INFLECTRA [Suspect]
     Active Substance: INFLIXIMAB-DYYB
     Dosage: EVERY 6 WEEK
     Route: 042
     Dates: start: 20230919, end: 20231212
  9. INFLECTRA [Suspect]
     Active Substance: INFLIXIMAB-DYYB
     Dosage: (10MG/KG), 6 WEEKS
     Route: 042
     Dates: start: 20231031
  10. INFLECTRA [Suspect]
     Active Substance: INFLIXIMAB-DYYB
     Dosage: EVERY 8 WEEK
     Route: 042
     Dates: start: 20240206, end: 20240206
  11. ACETAMINOPHEN [Concomitant]
     Active Substance: ACETAMINOPHEN
     Indication: Premedication
     Dosage: 1000 MG
     Dates: start: 20230417, end: 20230417
  12. ACETAMINOPHEN [Concomitant]
     Active Substance: ACETAMINOPHEN
     Dosage: 1000 MG, PO
     Route: 048
     Dates: start: 20230612, end: 20230612
  13. AMLODIPINE [Concomitant]
     Active Substance: AMLODIPINE BESYLATE
     Dosage: 1 DF
  14. BENADRYL [Concomitant]
     Active Substance: DIPHENHYDRAMINE HYDROCHLORIDE
     Indication: Premedication
     Dosage: 100 MG
     Dates: start: 20220331
  15. BENADRYL [Concomitant]
     Active Substance: DIPHENHYDRAMINE HYDROCHLORIDE
     Dosage: 50 MG
     Dates: start: 20220413
  16. CLONAZEPAM [Concomitant]
     Active Substance: CLONAZEPAM
     Dosage: 1 DF
  17. CALCIUM [Concomitant]
     Active Substance: CALCIUM
     Dosage: 1 DF
  18. DIPHENHYDRAMINE [Concomitant]
     Active Substance: DIPHENHYDRAMINE
     Indication: Premedication
     Dosage: 50 MG
     Dates: start: 20230417, end: 20230417
  19. DIPHENHYDRAMINE [Concomitant]
     Active Substance: DIPHENHYDRAMINE
     Dosage: 50 MG PO
     Route: 048
     Dates: start: 20230612, end: 20230612
  20. HYDROCORTISONE [Concomitant]
     Active Substance: HYDROCORTISONE
     Indication: Premedication
     Dosage: 100 MG
     Dates: start: 20230417, end: 20230417
  21. HYDROCORTISONE [Concomitant]
     Active Substance: HYDROCORTISONE
     Dosage: 100 MG IV
     Route: 042
     Dates: start: 20230612, end: 20230612
  22. IRON [Concomitant]
     Active Substance: IRON
     Dosage: 1 DF
  23. MONTELUKAST [Concomitant]
     Active Substance: MONTELUKAST SODIUM
     Dosage: 1 DF
  24. PANTOPRAZOLE SODIUM [Concomitant]
     Active Substance: PANTOPRAZOLE SODIUM
     Dosage: 1 DF
  25. PREGABALIN [Concomitant]
     Active Substance: PREGABALIN
     Dosage: 1 DF
  26. SYMBICORT [Concomitant]
     Active Substance: BUDESONIDE\FORMOTEROL FUMARATE DIHYDRATE
     Dosage: 1 DF
  27. SYNTHROID [Concomitant]
     Active Substance: LEVOTHYROXINE SODIUM
     Dosage: 1 DF
  28. OXYCODONE HYDROCHLORIDE [Concomitant]
     Active Substance: OXYCODONE HYDROCHLORIDE
     Dosage: 1 DF

REACTIONS (11)
  - Haemorrhage [Unknown]
  - Nephrolithiasis [Recovered/Resolved]
  - Fatigue [Unknown]
  - Somnolence [Unknown]
  - Toothache [Not Recovered/Not Resolved]
  - Blood pressure increased [Not Recovered/Not Resolved]
  - Blood pressure systolic increased [Not Recovered/Not Resolved]
  - Condition aggravated [Recovered/Resolved]
  - Off label use [Unknown]
  - Off label use [Unknown]
  - Intentional product use issue [Unknown]

NARRATIVE: CASE EVENT DATE: 20220101
